FAERS Safety Report 10578358 (Version 1)
Quarter: 2014Q4

REPORT INFORMATION
  Report Type: Spontaneous
  Country: US (occurrence: None)
  Receive Date: 20141111
  Receipt Date: 20141111
  Transmission Date: 20150529
  Serious: Yes (Disabling, Other)
  Sender: FDA-Public Use
  Company Number: None

PATIENT
  Age: 57 Year
  Sex: Female
  Weight: 96.16 kg

DRUGS (1)
  1. PROLIA [Suspect]
     Active Substance: DENOSUMAB
     Indication: BONE DISORDER

REACTIONS (11)
  - Influenza like illness [None]
  - Diarrhoea [None]
  - Arthralgia [None]
  - Hepatic enzyme increased [None]
  - Restlessness [None]
  - Chills [None]
  - Blood calcium decreased [None]
  - Pain in jaw [None]
  - Quality of life decreased [None]
  - Activities of daily living impaired [None]
  - Pyrexia [None]

NARRATIVE: CASE EVENT DATE: 20131218
